FAERS Safety Report 9696222 (Version 1)
Quarter: 2013Q4

REPORT INFORMATION
  Report Type: Report from Study
  Country: NL (occurrence: NL)
  Receive Date: 20131119
  Receipt Date: 20131119
  Transmission Date: 20140711
  Serious: Yes (Hospitalization)
  Sender: FDA-Public Use
  Company Number: PHHY2013NL131608

PATIENT
  Age: 70 Year
  Sex: Male

DRUGS (4)
  1. ZOMETA [Suspect]
     Indication: PROSTATE CANCER METASTATIC
     Dosage: 4 MG, PER 100 ML ONCE EVERY 4 WEEKS
     Route: 042
  2. ZOMETA [Suspect]
     Dosage: 4 MG, PER 100 ML ONCE EVERY 4 WEEKS
     Route: 042
     Dates: start: 20121030
  3. ZOMETA [Suspect]
     Dosage: 4 MG, PER 100 ML ONCE EVERY 4 WEEKS
     Route: 042
     Dates: start: 20131022
  4. ZOMETA [Suspect]
     Dosage: 4 MG, PER 100 ML ONCE EVERY 4 WEEKS
     Route: 042
     Dates: start: 20131118

REACTIONS (2)
  - Cardiac failure [Unknown]
  - Fluid retention [Unknown]
